FAERS Safety Report 5856907-1 (Version None)
Quarter: 2008Q3

REPORT INFORMATION
  Report Type: 
  Country: None (occurrence: None)
  Receive Date: 20080821
  Receipt Date: 20080821
  Transmission Date: 20090109
  Serious: Yes (Hospitalization)
  Sender: FDA-Public Use
  Company Number: None

PATIENT

DRUGS (1)
  1. GLUTARALDEHYDE SOLUTION [Suspect]
     Indication: ACCIDENTAL EXPOSURE
     Dates: start: 20080612, end: 20080612

REACTIONS (2)
  - DIZZINESS [None]
  - NAUSEA [None]
